FAERS Safety Report 9303690 (Version 1)
Quarter: 2013Q2

REPORT INFORMATION
  Report Type: Spontaneous
  Country: US (occurrence: US)
  Receive Date: 20130522
  Receipt Date: 20130522
  Transmission Date: 20140414
  Serious: Yes (Hospitalization)
  Sender: FDA-Public Use
  Company Number: US-GLAXOSMITHKLINE-A0688714A

PATIENT
  Age: 45 Year
  Sex: Male
  Weight: 109.1 kg

DRUGS (9)
  1. AVANDIA [Suspect]
     Indication: TYPE 2 DIABETES MELLITUS
     Dosage: 4MG TWICE PER DAY
     Route: 048
     Dates: start: 20050510, end: 20050823
  2. AVANDAMET [Suspect]
     Indication: TYPE 2 DIABETES MELLITUS
     Route: 048
     Dates: start: 20041026, end: 20070611
  3. METFORMIN [Concomitant]
     Dates: start: 20031224
  4. AMARYL [Concomitant]
     Dates: start: 20031104
  5. TOPROL [Concomitant]
     Dates: start: 20030819, end: 200608
  6. POTASSIUM [Concomitant]
  7. TEMAZEPAM [Concomitant]
  8. GABITRIL [Concomitant]
  9. LEVOTHYROXINE [Concomitant]

REACTIONS (3)
  - Myocardial infarction [Not Recovered/Not Resolved]
  - Cardiac disorder [Unknown]
  - Renal impairment [Unknown]
